FAERS Safety Report 8513843 (Version 2)
Quarter: 2012Q4

REPORT INFORMATION
  Report Type: Report from Study
  Country: GR (occurrence: GR)
  Receive Date: 20120416
  Receipt Date: 20121011
  Transmission Date: 20130627
  Serious: Yes (Hospitalization)
  Sender: FDA-Public Use
  Company Number: GR-UCBSA-055007

PATIENT
  Age: 71 Year
  Sex: Male

DRUGS (9)
  1. CIMZIA [Suspect]
     Indication: RHEUMATOID ARTHRITIS
     Route: 058
     Dates: start: 20111015, end: 20120315
  2. METHOTREXATE [Concomitant]
  3. PREZOLON [Concomitant]
  4. FILISINE [Concomitant]
  5. ZURCAZOL [Concomitant]
  6. SPIRIVA [Concomitant]
  7. CALCIORAL D3 [Concomitant]
  8. DIANYCOTYL [Concomitant]
  9. BESIX [Concomitant]

REACTIONS (1)
  - Respiratory tract infection [Unknown]
